FAERS Safety Report 7030283-3 (Version None)
Quarter: 2010Q4

REPORT INFORMATION
  Report Type: 
  Country: None (occurrence: None)
  Receive Date: 20101006
  Receipt Date: 20100922
  Transmission Date: 20110411
  Serious: Yes (Other)
  Sender: FDA-Public Use
  Company Number: DE-ELI_LILLY_AND_COMPANY-DE201009006073

PATIENT
  Sex: Male

DRUGS (2)
  1. EFFIENT [Suspect]
     Dosage: 10 MG, UNKNOWN
     Route: 065
     Dates: start: 20100701
  2. PLAVIX [Concomitant]
     Dosage: UNK, UNKNOWN
     Route: 065
     Dates: end: 20100701

REACTIONS (1)
  - LACUNAR INFARCTION [None]
